FAERS Safety Report 8453933-3 (Version None)
Quarter: 2012Q2

REPORT INFORMATION
  Report Type: 
  Country: None (occurrence: None)
  Receive Date: 20120620
  Receipt Date: 20120615
  Transmission Date: 20120825
  Serious: Yes (Other)
  Sender: FDA-Public Use
  Company Number: US-PFIZER INC-2012145028

PATIENT
  Sex: Female
  Weight: 89 kg

DRUGS (2)
  1. DAYPRO [Concomitant]
     Indication: OSTEOARTHRITIS
     Dosage: 600 MG, UNK
  2. LYRICA [Suspect]
     Indication: FIBROMYALGIA
     Dosage: 100 MG, 3X/DAY
     Route: 048
     Dates: end: 20120602

REACTIONS (4)
  - FALL [None]
  - CONFUSIONAL STATE [None]
  - CONCUSSION [None]
  - HEAD INJURY [None]
